FAERS Safety Report 6312368-X (Version None)
Quarter: 2009Q3

REPORT INFORMATION
  Report Type: 
  Country: None (occurrence: None)
  Receive Date: 20090817
  Receipt Date: 20090812
  Transmission Date: 20100115
  Serious: Yes (Death, Hospitalization, Other)
  Sender: FDA-Public Use
  Company Number: PHHY2009JP30564

PATIENT
  Sex: Female
  Weight: 45 kg

DRUGS (5)
  1. NEORAL [Suspect]
     Indication: MYASTHENIA GRAVIS
     Dosage: UNK
     Dates: start: 20040601
  2. NEORAL [Suspect]
     Dosage: 110 MG/DAY
  3. NEORAL [Suspect]
     Dosage: 110 MG/DAY
     Route: 048
     Dates: start: 20040601
  4. PREDONINE [Concomitant]
     Indication: MYASTHENIA GRAVIS
     Dosage: 18 MG/DAY
     Dates: start: 20040601
  5. PREDONINE [Concomitant]
     Dosage: 18 MG

REACTIONS (23)
  - AGRANULOCYTOSIS [None]
  - ALOPECIA [None]
  - AUTOIMMUNE HEPATITIS [None]
  - BONE MARROW TRANSPLANT [None]
  - CATARACT [None]
  - CATARACT OPERATION [None]
  - CLOSTRIDIUM COLITIS [None]
  - DIABETIC RETINOPATHY [None]
  - DIAPHRAGMATIC OPERATION [None]
  - DISEASE RECURRENCE [None]
  - EMPHYSEMA [None]
  - GENERAL PHYSICAL HEALTH DETERIORATION [None]
  - HYPERPLASIA [None]
  - LUNG OPERATION [None]
  - MACULAR DEGENERATION [None]
  - PLEURAL OPERATION [None]
  - RETINAL DETACHMENT [None]
  - RETINAL PIGMENTATION [None]
  - SEPTIC SHOCK [None]
  - SKIN DEPIGMENTATION [None]
  - THYMOMA [None]
  - VISION BLURRED [None]
  - VISUAL ACUITY REDUCED [None]
